FAERS Safety Report 9734253 (Version 1)
Quarter: 2013Q4

REPORT INFORMATION
  Report Type: Spontaneous
  Country: CA (occurrence: CA)
  Receive Date: 20131205
  Receipt Date: 20131205
  Transmission Date: 20140711
  Serious: Yes (Hospitalization, Other)
  Sender: FDA-Public Use
  Company Number: CA-AMGEN-CANSP2013084598

PATIENT
  Age: 74 Year
  Sex: Female

DRUGS (2)
  1. ENBREL [Suspect]
     Indication: RHEUMATOID ARTHRITIS
     Dosage: 50 MG, UNK
     Route: 065
     Dates: start: 20101215
  2. MTX                                /00113801/ [Concomitant]
     Dosage: UNK

REACTIONS (4)
  - Heart valve replacement [Unknown]
  - Decreased immune responsiveness [Unknown]
  - Pneumonia viral [Recovered/Resolved]
  - Injection site rash [Recovered/Resolved]
